FAERS Safety Report 12586379 (Version 1)
Quarter: 2016Q3

REPORT INFORMATION
  Report Type: Spontaneous
  Country: US (occurrence: None)
  Receive Date: 20160722
  Receipt Date: 20160722
  Transmission Date: 20161109
  Serious: No
  Sender: FDA-Public Use
  Company Number: None

PATIENT
  Age: 14 Year
  Sex: Female

DRUGS (1)
  1. TAZZA [Suspect]
     Active Substance: BENZALKONIUM CHLORIDE
     Indication: INFECTION PROPHYLAXIS
     Dosage: APPLIED TO A SURFACE , USUALLY THE SKIN
     Dates: start: 20160721, end: 20160721

REACTIONS (1)
  - Application site rash [None]

NARRATIVE: CASE EVENT DATE: 20160721
